FAERS Safety Report 10898379 (Version 1)
Quarter: 2015Q1

REPORT INFORMATION
  Report Type: Spontaneous
  Country: US (occurrence: US)
  Receive Date: 20150309
  Receipt Date: 20150309
  Transmission Date: 20150721
  Serious: No
  Sender: FDA-Public Use
  Company Number: US-ABBVIE-14P-163-1260516-00

PATIENT
  Age: 45 Year
  Sex: Female
  Weight: 79 kg

DRUGS (23)
  1. ZONEGRAN [Concomitant]
     Active Substance: ZONISAMIDE
     Indication: COMPLEX REGIONAL PAIN SYNDROME
  2. NUVIGIL [Concomitant]
     Active Substance: ARMODAFINIL
     Indication: COMPLEX REGIONAL PAIN SYNDROME
  3. HYDROCORTISONE. [Concomitant]
     Active Substance: HYDROCORTISONE
     Indication: COMPLEX REGIONAL PAIN SYNDROME
  4. ASTAXANTHIN [Concomitant]
     Indication: INFLAMMATION
  5. LEUPROLIDE ACETATE DEPOT [Suspect]
     Active Substance: LEUPROLIDE ACETATE
     Indication: PELVIC PAIN
     Route: 030
     Dates: start: 201404, end: 201404
  6. OXYCODONE [Concomitant]
     Active Substance: OXYCODONE
     Indication: PAIN MANAGEMENT
  7. GABITRIL [Concomitant]
     Active Substance: TIAGABINE HYDROCHLORIDE
     Indication: COMPLEX REGIONAL PAIN SYNDROME
  8. LACTULOSE. [Concomitant]
     Active Substance: LACTULOSE
     Indication: CONSTIPATION
  9. NUVIGIL [Concomitant]
     Active Substance: ARMODAFINIL
     Indication: SOMNOLENCE
  10. COENZYME Q10 [Concomitant]
     Active Substance: UBIDECARENONE
     Indication: NERVOUS SYSTEM DISORDER
  11. COENZYME Q10 [Concomitant]
     Active Substance: UBIDECARENONE
     Indication: COMPLEX REGIONAL PAIN SYNDROME
  12. DURAGESIC [Concomitant]
     Active Substance: FENTANYL
     Indication: PAIN MANAGEMENT
     Route: 062
  13. XYREM [Concomitant]
     Active Substance: SODIUM OXYBATE
     Indication: COMPLEX REGIONAL PAIN SYNDROME
  14. AVIPAXIN [Concomitant]
     Indication: NERVOUS SYSTEM DISORDER
  15. AMITRIPTYLINE [Concomitant]
     Active Substance: AMITRIPTYLINE
     Indication: ANXIOLYTIC THERAPY
  16. ZANAFLEX [Concomitant]
     Active Substance: TIZANIDINE HYDROCHLORIDE
     Indication: COMPLEX REGIONAL PAIN SYNDROME
  17. XYREM [Concomitant]
     Active Substance: SODIUM OXYBATE
     Indication: DYSSOMNIA
  18. NEUROWISE [Concomitant]
     Indication: NERVOUS SYSTEM DISORDER
  19. ALOE VERA [Concomitant]
     Active Substance: ALOE VERA LEAF
     Indication: GASTRIC DISORDER
  20. AMLODIPINE [Concomitant]
     Active Substance: AMLODIPINE BESYLATE
     Indication: BLOOD PRESSURE
  21. CARAFATE [Concomitant]
     Active Substance: SUCRALFATE
     Indication: GASTRIC DISORDER
  22. HYDROCORTISONE. [Concomitant]
     Active Substance: HYDROCORTISONE
     Indication: ADRENAL INSUFFICIENCY
  23. DHEA [Concomitant]
     Active Substance: DEHYDROEPIANDROSTERONE-3-SULFATE SODIUM
     Indication: ADRENAL INSUFFICIENCY

REACTIONS (4)
  - Oedema peripheral [Not Recovered/Not Resolved]
  - Pain in extremity [Not Recovered/Not Resolved]
  - Pelvic pain [Not Recovered/Not Resolved]
  - Local swelling [Not Recovered/Not Resolved]

NARRATIVE: CASE EVENT DATE: 201404
